FAERS Safety Report 17274454 (Version 8)
Quarter: 2024Q4

REPORT INFORMATION
  Report Type: Report from Study
  Country: US (occurrence: US)
  Receive Date: 20200115
  Receipt Date: 20241231
  Transmission Date: 20250114
  Serious: Yes (Other)
  Sender: TAKEDA
  Company Number: US-TAKEDA-2020TUS001598

PATIENT
  Age: 69 Year
  Sex: Female
  Weight: 77.605 kg

DRUGS (3)
  1. IXAZOMIB [Suspect]
     Active Substance: IXAZOMIB
     Indication: Plasma cell myeloma
     Dosage: 3 MILLIGRAM
     Dates: start: 20191229, end: 20220912
  2. IXAZOMIB [Suspect]
     Active Substance: IXAZOMIB
     Dosage: 3 MILLIGRAM
  3. IXAZOMIB [Suspect]
     Active Substance: IXAZOMIB
     Dosage: 3 MILLIGRAM

REACTIONS (26)
  - Osteomyelitis [Unknown]
  - Illness [Unknown]
  - Alopecia [Unknown]
  - Eating disorder [Unknown]
  - Pollakiuria [Unknown]
  - Ocular discomfort [Unknown]
  - Head discomfort [Unknown]
  - Paraesthesia [Not Recovered/Not Resolved]
  - Chills [Not Recovered/Not Resolved]
  - Eye disorder [Not Recovered/Not Resolved]
  - Feeling cold [Not Recovered/Not Resolved]
  - Hordeolum [Not Recovered/Not Resolved]
  - Pyrexia [Not Recovered/Not Resolved]
  - Insomnia [Unknown]
  - Decreased appetite [Unknown]
  - Cough [Unknown]
  - Headache [Unknown]
  - Dizziness [Not Recovered/Not Resolved]
  - Fatigue [Unknown]
  - Multiple allergies [Unknown]
  - Tongue ulceration [Recovering/Resolving]
  - Pruritus [Recovering/Resolving]
  - Vomiting [Unknown]
  - Nausea [Unknown]
  - Rash [Not Recovered/Not Resolved]
  - Diarrhoea [Unknown]

NARRATIVE: CASE EVENT DATE: 20221123
